FAERS Safety Report 7250425-4 (Version None)
Quarter: 2011Q1

REPORT INFORMATION
  Report Type: 
  Country: None (occurrence: None)
  Receive Date: 20110128
  Receipt Date: 20110120
  Transmission Date: 20110831
  Serious: Yes (Death, Other)
  Sender: FDA-Public Use
  Company Number: GB-ROCHE-754668

PATIENT
  Age: 45 Year
  Sex: Female

DRUGS (4)
  1. FLUOROURACIL [Concomitant]
  2. CYCLOPHOSPHAMIDE [Concomitant]
  3. HERCEPTIN [Suspect]
     Indication: BREAST CANCER
     Route: 065
  4. EPIRUBICIN [Concomitant]

REACTIONS (3)
  - EJECTION FRACTION DECREASED [None]
  - SUDDEN DEATH [None]
  - EMBOLISM ARTERIAL [None]
